FAERS Safety Report 8424226-5 (Version None)
Quarter: 2012Q2

REPORT INFORMATION
  Report Type: 
  Country: None (occurrence: None)
  Receive Date: 20120608
  Receipt Date: 20120207
  Transmission Date: 20120825
  Serious: No
  Sender: FDA-Public Use
  Company Number: US-ASTRAZENECA-2012SE08338

PATIENT
  Sex: Male
  Weight: 68 kg

DRUGS (5)
  1. PULMICORT FLEXHALER [Suspect]
     Route: 055
  2. SYMBICORT [Concomitant]
  3. ALBUTEROL [Concomitant]
  4. PULMICORT FLEXHALER [Suspect]
     Indication: CHRONIC OBSTRUCTIVE PULMONARY DISEASE
     Route: 055
  5. PULMICORT FLEXHALER [Suspect]
     Indication: ASTHMA
     Route: 055

REACTIONS (4)
  - DRUG INEFFECTIVE [None]
  - DRUG EFFECT INCREASED [None]
  - INCORRECT DOSE ADMINISTERED [None]
  - CHEST DISCOMFORT [None]
